FAERS Safety Report 9269626 (Version 3)
Quarter: 2013Q3

REPORT INFORMATION
  Report Type: Spontaneous
  Country: US (occurrence: US)
  Receive Date: 20130503
  Receipt Date: 20130718
  Transmission Date: 20140515
  Serious: Yes (Other)
  Sender: FDA-Public Use
  Company Number: US-ASTELLAS-2013US003315

PATIENT
  Age: 70 Year
  Sex: Male
  Weight: 91 kg

DRUGS (3)
  1. XTANDI [Suspect]
     Indication: PROSTATE CANCER METASTATIC
     Dosage: 4 DF, UID/QD
     Route: 048
     Dates: start: 20130213
  2. LUPRON DEPOT [Suspect]
     Indication: PRODUCT USED FOR UNKNOWN INDICATION
     Dosage: UNK
     Route: 065
  3. ARIXTRA [Concomitant]
     Indication: PULMONARY EMBOLISM
     Dosage: UNK
     Route: 065

REACTIONS (11)
  - Malignant neoplasm progression [Unknown]
  - Dysphagia [Unknown]
  - Vision blurred [Recovered/Resolved]
  - Malaise [Recovered/Resolved]
  - Nausea [Recovered/Resolved]
  - Vomiting [Recovered/Resolved]
  - Weight decreased [Unknown]
  - Tension headache [Unknown]
  - Memory impairment [Unknown]
  - Cognitive disorder [Unknown]
  - Prostatic specific antigen increased [Unknown]
